FAERS Safety Report 5712064-3 (Version None)
Quarter: 2008Q2

REPORT INFORMATION
  Report Type: 
  Country: None (occurrence: None)
  Receive Date: 20080418
  Receipt Date: 20080407
  Transmission Date: 20081010
  Serious: Yes (Hospitalization, Other)
  Sender: FDA-Public Use
  Company Number: 2008AP000817

PATIENT
  Age: 75 Year
  Sex: Male

DRUGS (2)
  1. LITHIUM CARBONATE CAP [Suspect]
     Indication: BIPOLAR I DISORDER
     Dosage: 450 MG; BID
  2. RISPERIDONE [Suspect]
     Indication: BIPOLAR I DISORDER
     Dosage: 2 MG; HS

REACTIONS (11)
  - ANTIPSYCHOTIC DRUG LEVEL INCREASED [None]
  - BODY TEMPERATURE INCREASED [None]
  - DISORIENTATION [None]
  - DRUG INTERACTION [None]
  - ENCEPHALOPATHY [None]
  - FLAT AFFECT [None]
  - LETHARGY [None]
  - MUSCLE RIGIDITY [None]
  - TREMOR [None]
  - UNRESPONSIVE TO STIMULI [None]
  - WHITE BLOOD CELL COUNT INCREASED [None]
